FAERS Safety Report 5221329-3 (Version None)
Quarter: 2007Q1

REPORT INFORMATION
  Report Type: 
  Country: None (occurrence: None)
  Receive Date: 20070126
  Receipt Date: 20070115
  Transmission Date: 20070707
  Serious: Yes (Hospitalization)
  Sender: FDA-Public Use
  Company Number: JP-PFIZER INC-2006155104

PATIENT
  Age: 66 Year
  Sex: Female
  Weight: 96.4 kg

DRUGS (15)
  1. DALACIN S [Suspect]
     Indication: PNEUMONIA
     Route: 042
     Dates: start: 20061211, end: 20061215
  2. MEROPEN [Suspect]
     Indication: SEPSIS
     Route: 042
     Dates: start: 20061207, end: 20061213
  3. GASTER OD [Concomitant]
     Route: 048
  4. GASTER [Concomitant]
     Route: 042
  5. ALBUMINAR [Concomitant]
     Route: 042
  6. LASIX [Concomitant]
     Route: 042
  7. ANTHROBIN P [Concomitant]
     Route: 042
  8. DOBUTREX [Concomitant]
     Route: 042
  9. FOY [Concomitant]
     Route: 042
  10. GLOVENIN [Concomitant]
     Route: 042
  11. PENTCILLIN [Concomitant]
     Route: 042
  12. TIENAM [Concomitant]
     Route: 042
  13. DOPAMINE HCL [Concomitant]
     Route: 042
  14. PROPOFOL [Concomitant]
     Route: 042
  15. FENTANYL [Concomitant]
     Route: 042

REACTIONS (4)
  - BLISTER [None]
  - ERYTHEMA [None]
  - RASH [None]
  - RASH PUSTULAR [None]
